FAERS Safety Report 20509029 (Version 1)
Quarter: 2022Q1

REPORT INFORMATION
  Report Type: Spontaneous
  Country: CA (occurrence: CA)
  Receive Date: 20220223
  Receipt Date: 20220223
  Transmission Date: 20220423
  Serious: Yes (Hospitalization, Other)
  Sender: FDA-Public Use
  Company Number: CA-MLMSERVICE-20211007-3154068-1

PATIENT
  Age: 30 Year
  Sex: Male

DRUGS (4)
  1. TRAMADOL HYDROCHLORIDE [Interacting]
     Active Substance: TRAMADOL HYDROCHLORIDE
     Indication: Musculoskeletal injury
     Dosage: 100 MILLIGRAM
     Route: 065
  2. ESCITALOPRAM [Interacting]
     Active Substance: ESCITALOPRAM OXALATE
     Indication: Depression
     Dosage: 20 MILLIGRAM, 1/DAY
     Route: 065
  3. TRYPTOPHAN [Interacting]
     Active Substance: TRYPTOPHAN
     Indication: Depression
     Dosage: 1 GRAM
     Route: 065
  4. MIRTAZAPINE [Interacting]
     Active Substance: MIRTAZAPINE
     Indication: Depression
     Dosage: 30 MILLIGRAM, 1/DAY
     Route: 065

REACTIONS (8)
  - Serotonin syndrome [Recovered/Resolved]
  - Tension [Recovered/Resolved]
  - Anxiety [Recovered/Resolved]
  - Hypertension [Recovered/Resolved]
  - Tachycardia [Recovered/Resolved]
  - Drug interaction [Recovered/Resolved]
  - Drug interaction [Recovered/Resolved]
  - Drug interaction [Recovered/Resolved]
